FAERS Safety Report 6954815-6 (Version None)
Quarter: 2010Q3

REPORT INFORMATION
  Report Type: 
  Country: None (occurrence: None)
  Receive Date: 20100830
  Receipt Date: 20100820
  Transmission Date: 20110219
  Serious: No
  Sender: FDA-Public Use
  Company Number: US-BAYER-201031483NA

PATIENT
  Age: 19 Year
  Sex: Female

DRUGS (1)
  1. MIRENA [Suspect]
     Indication: CONTRACEPTION
     Route: 015
     Dates: start: 20060518, end: 20100804

REACTIONS (2)
  - PAIN [None]
  - PREGNANCY WITH CONTRACEPTIVE DEVICE [None]
